FAERS Safety Report 9181909 (Version 2)
Quarter: 2013Q2

REPORT INFORMATION
  Report Type: Spontaneous
  Country: DE (occurrence: DE)
  Receive Date: 20130322
  Receipt Date: 20130402
  Transmission Date: 20140414
  Serious: Yes (Other)
  Sender: FDA-Public Use
  Company Number: DE-JNJFOC-20130306440

PATIENT
  Sex: Female
  Weight: 80.5 kg

DRUGS (3)
  1. HALDOL DECANOATE [Suspect]
     Indication: SCHIZOPHRENIA, PARANOID TYPE
     Route: 065
  2. XEPLION [Suspect]
     Indication: SCHIZOPHRENIA, PARANOID TYPE
     Dosage: DAY 1
     Route: 030
     Dates: start: 20130308
  3. XEPLION [Suspect]
     Indication: SCHIZOPHRENIA, PARANOID TYPE
     Dosage: DAY 8
     Route: 030

REACTIONS (4)
  - Heart injury [Recovered/Resolved]
  - Extrasystoles [Recovered/Resolved]
  - Ventricular extrasystoles [None]
  - Supraventricular extrasystoles [None]
